FAERS Safety Report 12990053 (Version 3)
Quarter: 2018Q1

REPORT INFORMATION
  Report Type: Spontaneous
  Country: DE (occurrence: DE)
  Receive Date: 20161201
  Receipt Date: 20180105
  Transmission Date: 20180508
  Serious: Yes (Other)
  Sender: FDA-Public Use
  Company Number: DE-MYLANLABS-2016M1052632

PATIENT
  Age: 34 Year
  Sex: Female
  Weight: 97 kg

DRUGS (5)
  1. FOLIO FORTE [Suspect]
     Active Substance: FOLIC ACID\VITAMINS
     Indication: PROPHYLAXIS OF NEURAL TUBE DEFECT
     Dosage: 0.8 MG, QD
     Route: 048
  2. ABILIFY [Suspect]
     Active Substance: ARIPIPRAZOLE
     Indication: PSYCHOTIC DISORDER
     Dosage: 5 MG, QD
     Route: 048
     Dates: start: 20151029, end: 20160729
  3. HYPNOREX [Suspect]
     Active Substance: LITHIUM CARBONATE
     Indication: PSYCHOTIC DISORDER
     Dosage: 450 MG, BID
     Route: 048
     Dates: start: 20151029, end: 20160729
  4. L-THYROXIN [Suspect]
     Active Substance: LEVOTHYROXINE SODIUM
     Indication: HYPOTHYROIDISM
     Dosage: 150 ?G, QD
     Route: 048
     Dates: start: 20151029, end: 20160729
  5. CLOZAPINE. [Suspect]
     Active Substance: CLOZAPINE
     Indication: PSYCHOTIC DISORDER
     Dosage: 50 MG, BID
     Route: 048
     Dates: start: 20151029, end: 20160729

REACTIONS (5)
  - Normal newborn [Unknown]
  - Product use issue [Unknown]
  - Maternal exposure during pregnancy [Recovered/Resolved]
  - Gestational diabetes [Recovered/Resolved]
  - Caesarean section [Unknown]

NARRATIVE: CASE EVENT DATE: 20151029
